FAERS Safety Report 19007799 (Version 1)
Quarter: 2021Q1

REPORT INFORMATION
  Report Type: Spontaneous
  Country: CN (occurrence: CN)
  Receive Date: 20210315
  Receipt Date: 20210315
  Transmission Date: 20210420
  Serious: Yes (Hospitalization, Other)
  Sender: FDA-Public Use
  Company Number: CN-PFIZER INC-2021229727

PATIENT
  Age: 81 Year
  Sex: Male
  Weight: 70.5 kg

DRUGS (3)
  1. ANZATAX (PACLITAXEL) [Suspect]
     Active Substance: PACLITAXEL
     Indication: CHEMOTHERAPY
  2. ANZATAX (PACLITAXEL) [Suspect]
     Active Substance: PACLITAXEL
     Indication: NON-SMALL CELL LUNG CANCER
     Dosage: 318 MG, 1X/DAY
     Route: 041
     Dates: start: 20200923, end: 20200923
  3. SODIUM CHLORIDE. [Concomitant]
     Active Substance: SODIUM CHLORIDE
     Indication: VEHICLE SOLUTION USE
     Dosage: 500.000 ML, 1X/DAY
     Route: 041
     Dates: start: 20200923, end: 20200923

REACTIONS (8)
  - Cold sweat [Recovered/Resolved]
  - Coma [Recovering/Resolving]
  - Off label use [Unknown]
  - Heart rate increased [Recovering/Resolving]
  - Gaze palsy [Recovering/Resolving]
  - Blood pressure increased [Recovering/Resolving]
  - Loss of consciousness [Recovering/Resolving]
  - Fatigue [Unknown]

NARRATIVE: CASE EVENT DATE: 20200923
